FAERS Safety Report 6313584-3 (Version None)
Quarter: 2009Q3

REPORT INFORMATION
  Report Type: 
  Country: None (occurrence: None)
  Receive Date: 20090818
  Receipt Date: 20090813
  Transmission Date: 20100115
  Serious: Yes (Other)
  Sender: FDA-Public Use
  Company Number: GB-BRISTOL-MYERS SQUIBB COMPANY-14741714

PATIENT
  Age: 51 Year
  Sex: Male
  Weight: 60 kg

DRUGS (1)
  1. VIDEX [Suspect]
     Dates: start: 19970101, end: 20070101

REACTIONS (2)
  - HEPATIC CIRRHOSIS [None]
  - PERITONEAL FIBROSIS [None]
